FAERS Safety Report 8776150 (Version 1)
Quarter: 2012Q4

REPORT INFORMATION
  Report Type: 
  Country: US (occurrence: US)
  Receive Date: 20120910
  Receipt Date: 20120910
  Transmission Date: 20130627
  Serious: No
  Sender: FDA-Public Use
  Company Number: US-BAYER-2012-092751

PATIENT
  Age: 55 Year
  Sex: Male

DRUGS (3)
  1. LEVITRA [Suspect]
     Indication: ERECTILE DYSFUNCTION
     Dosage: 10 mg, PRN
     Route: 048
  2. NORVASC [Concomitant]
  3. ALTACE [Concomitant]

REACTIONS (3)
  - Erectile dysfunction [Recovered/Resolved]
  - Erectile dysfunction [Recovered/Resolved]
  - Erectile dysfunction [Recovered/Resolved]
